FAERS Safety Report 8997539 (Version 1)
Quarter: 2013Q1

REPORT INFORMATION
  Report Type: Spontaneous
  Country: CA (occurrence: CA)
  Receive Date: 20130104
  Receipt Date: 20130104
  Transmission Date: 20140127
  Serious: No
  Sender: FDA-Public Use
  Company Number: CA-009507513-1301CAN001652

PATIENT
  Age: 49 Year
  Sex: Female

DRUGS (6)
  1. SAPHRIS [Suspect]
     Indication: BIPOLAR II DISORDER
     Dosage: 5 MG, QD
     Dates: start: 20121031, end: 20121102
  2. TOPAMAX [Concomitant]
     Dosage: 100 MG, BID
  3. CYMBALTA [Concomitant]
     Dosage: 60 MG, QD
  4. GABAPENTIN [Concomitant]
     Dosage: 800 MG, UNK
  5. TRAZODONE HYDROCHLORIDE [Concomitant]
     Dosage: 300 MG, UNK
  6. WELLBUTRIN XL [Concomitant]
     Dosage: 300 MG, UNK

REACTIONS (7)
  - Underdose [Unknown]
  - Eye swelling [Recovered/Resolved]
  - Lymphadenopathy [Recovered/Resolved]
  - Nervousness [Recovered/Resolved]
  - Confusional state [Recovered/Resolved]
  - Palpitations [Recovered/Resolved]
  - Headache [Recovered/Resolved]
